FAERS Safety Report 6608622-4 (Version None)
Quarter: 2010Q1

REPORT INFORMATION
  Report Type: 
  Country: None (occurrence: None)
  Receive Date: 20100226
  Receipt Date: 20100226
  Transmission Date: 20100710
  Serious: No
  Sender: FDA-Public Use
  Company Number: None

PATIENT
  Age: 48 Year
  Sex: Male
  Weight: 79.3795 kg

DRUGS (3)
  1. MIRTAZAPINE [Suspect]
     Dosage: 30MG PO
     Route: 048
  2. VENLAFAXINE [Concomitant]
  3. BUSPIRONE HCL [Concomitant]

REACTIONS (2)
  - HEADACHE [None]
  - INSOMNIA [None]
